FAERS Safety Report 9709748 (Version 1)
Quarter: 2013Q4

REPORT INFORMATION
  Report Type: Spontaneous
  Country: US (occurrence: US)
  Receive Date: 20131126
  Receipt Date: 20131126
  Transmission Date: 20140711
  Serious: No
  Sender: FDA-Public Use
  Company Number: US-009507513-1311USA009389

PATIENT
  Age: 22 Year
  Sex: Female

DRUGS (1)
  1. IMPLANON [Suspect]
     Indication: CONTRACEPTION
     Dosage: 1 ROD FOR 3 YEARS
     Route: 059
     Dates: start: 20121129

REACTIONS (8)
  - Unintended pregnancy [Unknown]
  - Headache [Unknown]
  - Pruritus [Unknown]
  - Hot flush [Unknown]
  - Hypoaesthesia [Unknown]
  - Menstruation delayed [Unknown]
  - Mood swings [Unknown]
  - Loss of libido [Unknown]
